FAERS Safety Report 5249087-7 (Version None)
Quarter: 2007Q1

REPORT INFORMATION
  Report Type: 
  Country: None (occurrence: None)
  Receive Date: 20070228
  Receipt Date: 20060824
  Transmission Date: 20070707
  Serious: No
  Sender: FDA-Public Use
  Company Number: US-GLAXOSMITHKLINE-A0614209A

PATIENT
  Age: 58 Year
  Sex: Female
  Weight: 56.8 kg

DRUGS (3)
  1. VALTREX [Suspect]
     Indication: BLISTER
     Dosage: 500MG TWICE PER DAY
     Route: 048
     Dates: start: 20060701
  2. ZOCOR [Concomitant]
  3. SYNTHROID [Concomitant]

REACTIONS (2)
  - ALOPECIA [None]
  - HAIR TEXTURE ABNORMAL [None]
